FAERS Safety Report 10583994 (Version 1)
Quarter: 2014Q4

REPORT INFORMATION
  Report Type: Spontaneous
  Country: US (occurrence: None)
  Receive Date: 20141113
  Receipt Date: 20141113
  Transmission Date: 20150529
  Serious: No
  Sender: FDA-Public Use
  Company Number: None

PATIENT
  Age: 46 Year
  Sex: Female
  Weight: 56.7 kg

DRUGS (1)
  1. BRILINTA [Suspect]
     Active Substance: TICAGRELOR
     Indication: STENT PLACEMENT
     Dosage: 1 PILL TWICE DAILY TAKEN BY MOUTH
     Route: 048
     Dates: start: 20141031, end: 20141112

REACTIONS (6)
  - Hypoacusis [None]
  - Dizziness [None]
  - Ear discomfort [None]
  - Impaired driving ability [None]
  - Euphoric mood [None]
  - Thinking abnormal [None]

NARRATIVE: CASE EVENT DATE: 20141031
